FAERS Safety Report 10262112 (Version 9)
Quarter: 2015Q4

REPORT INFORMATION
  Report Type: Report from Study
  Country: US (occurrence: US)
  Receive Date: 20140626
  Receipt Date: 20151022
  Transmission Date: 20160304
  Serious: Yes (Disabling, Other)
  Sender: FDA-Public Use
  Company Number: US-SA-2014SA056474

PATIENT
  Age: 59 Year
  Sex: Female

DRUGS (9)
  1. AUBAGIO [Suspect]
     Active Substance: TERIFLUNOMIDE
     Indication: RELAPSING-REMITTING MULTIPLE SCLEROSIS
     Route: 048
     Dates: start: 201507
  2. TROKENDI [Concomitant]
     Active Substance: TOPIRAMATE
     Dosage: XR
  3. DOXEPIN [Concomitant]
     Active Substance: DOXEPIN
  4. CHANTIX [Concomitant]
     Active Substance: VARENICLINE TARTRATE
     Indication: SMOKING CESSATION THERAPY
  5. ASPIRIN. [Concomitant]
     Active Substance: ASPIRIN
  6. AUBAGIO [Suspect]
     Active Substance: TERIFLUNOMIDE
     Indication: RELAPSING-REMITTING MULTIPLE SCLEROSIS
     Route: 048
     Dates: start: 201507
  7. VENLAFAXINE [Concomitant]
     Active Substance: VENLAFAXINE HYDROCHLORIDE
  8. AUBAGIO [Suspect]
     Active Substance: TERIFLUNOMIDE
     Indication: RELAPSING-REMITTING MULTIPLE SCLEROSIS
     Route: 048
     Dates: start: 20140412
  9. CLONAZEPAM. [Concomitant]
     Active Substance: CLONAZEPAM

REACTIONS (18)
  - Gait disturbance [Unknown]
  - Haematochezia [Unknown]
  - Knee arthroplasty [Unknown]
  - Arthralgia [Unknown]
  - Balance disorder [Not Recovered/Not Resolved]
  - Muscular weakness [Unknown]
  - Nausea [Unknown]
  - Diarrhoea [Unknown]
  - Tremor [Recovered/Resolved]
  - Hyperhidrosis [Unknown]
  - Paraesthesia [Unknown]
  - Weight decreased [Unknown]
  - Limb discomfort [Unknown]
  - Intervertebral disc space narrowing [Not Recovered/Not Resolved]
  - Gallbladder operation [Unknown]
  - Pain [Unknown]
  - Memory impairment [Unknown]
  - Unevaluable event [Unknown]

NARRATIVE: CASE EVENT DATE: 20140521
